FAERS Safety Report 7203087-6 (Version None)
Quarter: 2010Q4

REPORT INFORMATION
  Report Type: 
  Country: None (occurrence: None)
  Receive Date: 20101229
  Receipt Date: 20101216
  Transmission Date: 20110411
  Serious: Yes (Hospitalization, Other)
  Sender: FDA-Public Use
  Company Number: RS-GENENTECH-309684

PATIENT
  Sex: Male
  Weight: 101.5 kg

DRUGS (3)
  1. RITUXIMAB [Suspect]
     Indication: CHRONIC LYMPHOCYTIC LEUKAEMIA
     Dosage: 750 MG, 1/MONTH
     Route: 042
     Dates: start: 20090915, end: 20100422
  2. FLUDARABINE [Suspect]
     Indication: CHRONIC LYMPHOCYTIC LEUKAEMIA
     Dosage: 25 MG/M2, 1/MONTH
     Route: 042
     Dates: start: 20090915, end: 20100422
  3. CYCLOPHOSPHAMIDE [Suspect]
     Indication: CHRONIC LYMPHOCYTIC LEUKAEMIA
     Dosage: 250 MG/M2, 1/MONTH
     Route: 042
     Dates: start: 20090915, end: 20100422

REACTIONS (5)
  - ERYSIPELAS [None]
  - FEBRILE NEUTROPENIA [None]
  - HYPOGAMMAGLOBULINAEMIA [None]
  - NEUTROPENIA [None]
  - PNEUMONIA [None]
